FAERS Safety Report 9560619 (Version 1)
Quarter: 2013Q3

REPORT INFORMATION
  Report Type: Spontaneous
  Country: US (occurrence: None)
  Receive Date: 20130821
  Receipt Date: 20130821
  Transmission Date: 20140515
  Serious: No
  Sender: FDA-Public Use
  Company Number: 1000044648

PATIENT
  Age: 70 Year
  Sex: Female

DRUGS (18)
  1. TUDORZA PRESSAIR (ACLIDINIUM BROMIDE) (400 MICROGRAM, POWDER) [Suspect]
     Indication: CHRONIC OBSTRUCTIVE PULMONARY DISEASE
     Dosage: 800 MCG (400 MCG, 2 IN 1 D), RESPIRATORY (INHALATION)
     Route: 055
     Dates: start: 20130301
  2. TUDORZA PRESSAIR (ACLIDINIUM BROMIDE) (400 MICROGRAM, POWDER) [Suspect]
     Indication: TERMINAL STATE
     Dosage: 800 MCG (400 MCG, 2 IN 1 D), RESPIRATORY (INHALATION)
     Route: 055
     Dates: start: 20130301
  3. LASIX (FUROSEMIDE) [Concomitant]
  4. LEVOTHYROXINE (LEVOTHYROXINE SODIUM) [Concomitant]
  5. DEXILANT (DEXLANSOPRAZOLE) [Concomitant]
  6. ISOSORBIDE MONONITRATE [Concomitant]
  7. COLESTIPOL [Concomitant]
  8. NITROGLYCERIN (GLYCERYL TRINITRATE) [Concomitant]
  9. METFORMIN [Concomitant]
  10. POTASSIUM [Concomitant]
  11. MAGNESIUM [Concomitant]
  12. ALPRAZOLAM [Concomitant]
  13. ALBUTEROL SULFATE (SALBUTAMOL SULFATE) [Concomitant]
  14. LOVASA (OMEGA-3 ACID ETHYL ESTERS) [Concomitant]
  15. EVISTA (RALOXIFENE HYDROCHLORIDE) [Concomitant]
  16. PRAVASTATIN [Concomitant]
  17. TRUSOPT (DORZOLAMIDE HYDROCHLORIDE) (20 MILLIGRAM/MILLILITERS, EYE DROPS, SOLUTION) (DORZOLAMIDE HYDROCHLORIDE) [Concomitant]
  18. COMBIVENT (IPRATROPIUM, ALBUTEROL) [Concomitant]

REACTIONS (4)
  - Dysuria [None]
  - Cough [None]
  - Musculoskeletal chest pain [None]
  - Dyspnoea [None]
